FAERS Safety Report 8863911 (Version 1)
Quarter: 2012Q4

REPORT INFORMATION
  Report Type: 
  Country: US (occurrence: US)
  Receive Date: 20121024
  Receipt Date: 20121024
  Transmission Date: 20130627
  Serious: No
  Sender: FDA-Public Use
  Company Number: US-AMGEN-USASP2011064640

PATIENT
  Age: 49 Year
  Sex: Male
  Weight: 70 kg

DRUGS (9)
  1. ENBREL [Suspect]
     Indication: PSORIATIC ARTHROPATHY
     Dosage: 50 mg, UNK
     Route: 058
  2. FENTANYL [Concomitant]
     Dosage: 12 mug, UNK
  3. CYMBALTA [Concomitant]
     Dosage: 30 mg, UNK
     Route: 048
  4. DIAZEPAM [Concomitant]
     Dosage: 10 mg, UNK
     Route: 048
  5. AMBIEN [Concomitant]
     Dosage: 5 mg, UNK
     Route: 048
  6. PERCOCET [Concomitant]
     Dosage: 10-325 mg
     Route: 048
  7. MAGNESIUM [Concomitant]
     Dosage: 300 mg, UNK
     Route: 048
  8. CALCIUM [Concomitant]
     Route: 048
  9. MSM [Concomitant]
     Dosage: 1000 mg, UNK
     Route: 048

REACTIONS (1)
  - Stomatitis [Unknown]
